FAERS Safety Report 9816536 (Version 1)
Quarter: 2014Q1

REPORT INFORMATION
  Report Type: Spontaneous
  Country: US (occurrence: US)
  Receive Date: 20140114
  Receipt Date: 20140114
  Transmission Date: 20141002
  Serious: No
  Sender: FDA-Public Use
  Company Number: US-B.I. PHARMACEUTICALS,INC./RIDGEFIELD-2014-BI-00572BP

PATIENT
  Age: 77 Year
  Sex: Female

DRUGS (5)
  1. PRADAXA [Suspect]
     Indication: ATRIAL FIBRILLATION
     Dosage: 300 MG
     Route: 048
     Dates: start: 2012
  2. METOPROLOL [Concomitant]
     Dosage: 200 MG
     Route: 048
  3. FUROSEMIDE [Concomitant]
     Route: 048
  4. LISINOPRIL [Concomitant]
     Dosage: 5 MG
     Route: 048
  5. VITAMIN D [Concomitant]
     Route: 048

REACTIONS (1)
  - Mass [Not Recovered/Not Resolved]
